FAERS Safety Report 8847135 (Version 2)
Quarter: 2013Q1

REPORT INFORMATION
  Report Type: Spontaneous
  Country: GB (occurrence: GB)
  Receive Date: 20121018
  Receipt Date: 20130206
  Transmission Date: 20140127
  Serious: Yes (Other)
  Sender: FDA-Public Use
  Company Number: GB-US-EMD SERONO, INC.-7167771

PATIENT
  Sex: Female

DRUGS (6)
  1. REBIF [Suspect]
     Indication: PRODUCT USED FOR UNKNOWN INDICATION
     Route: 058
     Dates: start: 20120606
  2. SETRALINE (SERTRALINE) [Concomitant]
     Indication: MOOD ALTERED
     Route: 048
  3. AMITRIPTYLINE [Concomitant]
     Indication: PAIN
     Route: 048
  4. CETRIZINE [Concomitant]
     Indication: PRURITUS
     Route: 048
  5. PREGABALIN [Concomitant]
     Indication: PAIN
     Route: 048
  6. PARACETAMOL [Concomitant]
     Indication: PAIN
     Route: 048

REACTIONS (2)
  - Abortion spontaneous [Recovered/Resolved]
  - Maternal exposure during pregnancy [Recovered/Resolved]
